FAERS Safety Report 24087391 (Version 1)
Quarter: 2024Q3

REPORT INFORMATION
  Report Type: Spontaneous
  Country: US (occurrence: US)
  Receive Date: 20240714
  Receipt Date: 20240714
  Transmission Date: 20241017
  Serious: No
  Sender: BAYER
  Company Number: US-BAYER-2024A100867

PATIENT
  Age: 60 Year
  Sex: Female

DRUGS (1)
  1. MIRALAX [Suspect]
     Active Substance: POLYETHYLENE GLYCOL 3350
     Indication: Gastrointestinal disorder
     Route: 048
     Dates: start: 20240706, end: 20240709

REACTIONS (2)
  - Abdominal pain upper [Recovered/Resolved]
  - Abdominal discomfort [None]

NARRATIVE: CASE EVENT DATE: 20240706
